FAERS Safety Report 5623270-0 (Version None)
Quarter: 2008Q1

REPORT INFORMATION
  Report Type: 
  Country: None (occurrence: None)
  Receive Date: 20080212
  Receipt Date: 20080131
  Transmission Date: 20080703
  Serious: Yes (Hospitalization)
  Sender: FDA-Public Use
  Company Number: FR-ROCHE-545057

PATIENT
  Age: 87 Year
  Sex: Male

DRUGS (3)
  1. ROCEPHIN [Suspect]
     Dosage: FORM: INJECTABLE SOLUTION
     Route: 042
     Dates: start: 20071112, end: 20071126
  2. CIFLOX [Suspect]
     Dosage: FORM: INJECTABLE SOLUTION
     Route: 042
     Dates: start: 20071109, end: 20071122
  3. NIFLUGEL [Suspect]
     Indication: DRUG USE FOR UNKNOWN INDICATION
     Dosage: ROUTE REPORTED AS LOCAL
     Route: 050
     Dates: start: 20071109, end: 20071115

REACTIONS (1)
  - PURPURA [None]
